FAERS Safety Report 7108062-8 (Version None)
Quarter: 2010Q4

REPORT INFORMATION
  Report Type: 
  Country: None (occurrence: None)
  Receive Date: 20101115
  Receipt Date: 20101115
  Transmission Date: 20110411
  Serious: Yes (Other)
  Sender: FDA-Public Use
  Company Number: None

PATIENT
  Age: 54 Year
  Sex: Female
  Weight: 74.8435 kg

DRUGS (7)
  1. ULTRAM [Suspect]
     Dosage: 50 2/1DAY ONLY TOOK 1 PER/DAY FOR 2 DAYS
  2. LORTAB [Concomitant]
  3. SOMA [Concomitant]
  4. PRAVASTATIN [Concomitant]
  5. ARIMOVO [Concomitant]
  6. SYNTHROID [Concomitant]
  7. LUNESTA [Concomitant]

REACTIONS (3)
  - CYANOPSIA [None]
  - DIZZINESS [None]
  - HALLUCINATIONS, MIXED [None]
